FAERS Safety Report 8666020 (Version 2)
Quarter: 2012Q4

REPORT INFORMATION
  Report Type: 
  Country: US (occurrence: US)
  Receive Date: 20120716
  Receipt Date: 20121226
  Transmission Date: 20130627
  Serious: Yes (Other)
  Sender: FDA-Public Use
  Company Number: US-ASTRAZENECA-2012SE46578

PATIENT
  Age: 61 Year
  Sex: Female
  Weight: 66.2 kg

DRUGS (6)
  1. CRESTOR [Suspect]
     Indication: BLOOD TRIGLYCERIDES INCREASED
     Route: 048
  2. FOLBIC ACID [Concomitant]
  3. PROTONIX [Concomitant]
  4. BABY ASPRIRIN [Concomitant]
  5. FISH OIL [Concomitant]
  6. CALCIUM [Concomitant]

REACTIONS (9)
  - Thyroid disorder [Unknown]
  - Hyperhomocysteinaemia [Unknown]
  - Cardiolipin antibody [Unknown]
  - Coagulopathy [Unknown]
  - Weight decreased [Unknown]
  - Weight increased [Unknown]
  - Dysphonia [Unknown]
  - Arteriosclerosis [Unknown]
  - Memory impairment [Unknown]
